FAERS Safety Report 9753799 (Version 3)
Quarter: 2015Q3

REPORT INFORMATION
  Report Type: Spontaneous
  Country: US (occurrence: US)
  Receive Date: 20131213
  Receipt Date: 20150805
  Transmission Date: 20151125
  Serious: No
  Sender: FDA-Public Use
  Company Number: US-GILEAD-2010-0026541

PATIENT
  Age: 40 Year
  Sex: Female

DRUGS (10)
  1. REVATIO [Concomitant]
     Active Substance: SILDENAFIL CITRATE
  2. ATRIPLA [Concomitant]
     Active Substance: EFAVIRENZ\EMTRICITABINE\TENOFOVIR DISOPROXIL FUMARATE
  3. PREZISTA [Concomitant]
     Active Substance: DARUNAVIR ETHANOLATE
  4. NORVIR [Concomitant]
     Active Substance: RITONAVIR
  5. HYDROCODONE [Concomitant]
     Active Substance: HYDROCODONE
  6. LETAIRIS [Suspect]
     Active Substance: AMBRISENTAN
     Indication: PULMONARY ARTERIAL HYPERTENSION
     Route: 048
     Dates: start: 200807
  7. FUROSEMIDE. [Concomitant]
     Active Substance: FUROSEMIDE
  8. ALBUTEROL. [Concomitant]
     Active Substance: ALBUTEROL
  9. POTASSIUM [Concomitant]
     Active Substance: POTASSIUM
  10. DIFLUCAN [Concomitant]
     Active Substance: FLUCONAZOLE

REACTIONS (1)
  - Liver function test abnormal [Recovered/Resolved]

NARRATIVE: CASE EVENT DATE: 20081114
